FAERS Safety Report 18711748 (Version 1)
Quarter: 2021Q1

REPORT INFORMATION
  Report Type: Spontaneous
  Country: US (occurrence: US)
  Receive Date: 20210107
  Receipt Date: 20210107
  Transmission Date: 20210419
  Serious: No
  Sender: FDA-Public Use
  Company Number: None

PATIENT
  Age: 60 Year
  Sex: Female
  Weight: 111.1 kg

DRUGS (1)
  1. BAMLANIVIMAB. [Suspect]
     Active Substance: BAMLANIVIMAB
     Indication: COVID-19
     Dates: start: 20210106, end: 20210106

REACTIONS (6)
  - Infusion related reaction [None]
  - Infusion site warmth [None]
  - Hyperhidrosis [None]
  - Erythema [None]
  - Skin burning sensation [None]
  - Oropharyngeal discomfort [None]

NARRATIVE: CASE EVENT DATE: 20210106
